FAERS Safety Report 6738665-1 (Version None)
Quarter: 2010Q2

REPORT INFORMATION
  Report Type: 
  Country: None (occurrence: None)
  Receive Date: 20100524
  Receipt Date: 20100511
  Transmission Date: 20101027
  Serious: Yes (Life-Threatening, Hospitalization, Other)
  Sender: FDA-Public Use
  Company Number: PHHY2010CA27851

PATIENT
  Sex: Female

DRUGS (3)
  1. CLOZARIL [Suspect]
     Indication: SCHIZOPHRENIA
     Dosage: 225 MG DAILY
     Route: 048
     Dates: start: 20020204
  2. FOLIC ACID [Concomitant]
     Dosage: 5 MG
  3. TETRABENAZINE [Concomitant]
     Dosage: 25 MG, TID

REACTIONS (4)
  - ABDOMINAL PAIN [None]
  - APPENDICITIS PERFORATED [None]
  - PERITONITIS [None]
  - SURGERY [None]
